FAERS Safety Report 5710436-4 (Version None)
Quarter: 2008Q2

REPORT INFORMATION
  Report Type: 
  Country: None (occurrence: None)
  Receive Date: 20080418
  Receipt Date: 20080410
  Transmission Date: 20081010
  Serious: Yes (Hospitalization)
  Sender: FDA-Public Use
  Company Number: CZ-PFIZER INC-2008032727

PATIENT
  Age: 68 Year
  Sex: Female

DRUGS (6)
  1. SORTIS [Suspect]
  2. ISOSORBIDE MONONITRATE [Suspect]
  3. METOPROLOL TARTRATE [Concomitant]
  4. ENALAPRIL MALEATE [Concomitant]
  5. GODASAL [Concomitant]
  6. LETROX [Concomitant]

REACTIONS (1)
  - CARDIOMYOPATHY [None]
